FAERS Safety Report 10309316 (Version 1)
Quarter: 2014Q3

REPORT INFORMATION
  Report Type: Spontaneous
  Country: US (occurrence: None)
  Receive Date: 20140714
  Receipt Date: 20140714
  Transmission Date: 20150326
  Serious: Yes (Other)
  Sender: FDA-Public Use
  Company Number: UNT-2014-003486

PATIENT
  Age: 63 Year
  Sex: Female
  Weight: 48.1 kg

DRUGS (2)
  1. WARFARIN (WARFARIN) [Concomitant]
     Active Substance: WARFARIN
  2. TYVASO [Suspect]
     Active Substance: TREPROSTINIL
     Indication: COR PULMONALE CHRONIC
     Route: 055
     Dates: start: 20140611

REACTIONS (2)
  - Swelling face [None]
  - Peripheral swelling [None]

NARRATIVE: CASE EVENT DATE: 201406
